FAERS Safety Report 13141855 (Version 1)
Quarter: 2017Q1

REPORT INFORMATION
  Report Type: Spontaneous
  Country: IN (occurrence: IN)
  Receive Date: 20170124
  Receipt Date: 20170124
  Transmission Date: 20170428
  Serious: Yes (Life-Threatening, Other)
  Sender: FDA-Public Use
  Company Number: IN-CORCEPT THERAPEUTICS INC.-IN-2017CRT000029

PATIENT
  Age: 32 Year
  Sex: Female

DRUGS (2)
  1. MISOPROSTOL. [Suspect]
     Active Substance: MISOPROSTOL
     Indication: ABORTION
     Dosage: 200 ?G, SINGLE
  2. MIFEPRISTONE [Suspect]
     Active Substance: MIFEPRISTONE
     Indication: ABORTION
     Dosage: 400 MG, SINGLE

REACTIONS (12)
  - Ruptured ectopic pregnancy [Unknown]
  - Uterine tenderness [Unknown]
  - Vaginal haemorrhage [Recovered/Resolved]
  - Contraindicated product administered [Unknown]
  - Uterine enlargement [Unknown]
  - Fallopian tube enlargement [Unknown]
  - Haemoglobin decreased [Unknown]
  - Pallor [Unknown]
  - Pelvic fluid collection [Unknown]
  - Tachycardia [Unknown]
  - Abdominal pain lower [Recovered/Resolved]
  - Intra-abdominal haemorrhage [Unknown]
